FAERS Safety Report 24325764 (Version 1)
Quarter: 2024Q3

REPORT INFORMATION
  Report Type: Spontaneous
  Country: US (occurrence: US)
  Receive Date: 20240917
  Receipt Date: 20240917
  Transmission Date: 20241016
  Serious: Yes (Other)
  Sender: NOVO NORDISK
  Company Number: US-NOVOPROD-1281019

PATIENT
  Age: 75 Year
  Sex: Female

DRUGS (2)
  1. LEVEMIR [Suspect]
     Active Substance: INSULIN DETEMIR
     Indication: Type 1 diabetes mellitus
     Dosage: 18 IU, QD
     Route: 058
     Dates: start: 2023
  2. NOVOLOG [Suspect]
     Active Substance: INSULIN ASPART
     Indication: Type 1 diabetes mellitus
     Dosage: 18-20 UNITS PER DAY
     Route: 058
     Dates: start: 2023

REACTIONS (9)
  - Left atrial appendage closure implant [Unknown]
  - Swelling [Unknown]
  - Hypersensitivity [Unknown]
  - Diabetes mellitus inadequate control [Unknown]
  - Product dispensing error [Unknown]
  - Expired product administered [Unknown]
  - Illness [Unknown]
  - Lung disorder [Unknown]
  - Chest discomfort [Unknown]

NARRATIVE: CASE EVENT DATE: 20230101
